FAERS Safety Report 13401154 (Version 1)
Quarter: 2017Q2

REPORT INFORMATION
  Report Type: Spontaneous
  Country: US (occurrence: US)
  Receive Date: 20170404
  Receipt Date: 20170404
  Transmission Date: 20170830
  Serious: No
  Sender: FDA-Public Use
  Company Number: US-JNJFOC-20170307487

PATIENT
  Sex: Female

DRUGS (3)
  1. CONCERTA [Suspect]
     Active Substance: METHYLPHENIDATE HYDROCHLORIDE
     Indication: DISTURBANCE IN ATTENTION
     Route: 048
  2. CONCERTA [Suspect]
     Active Substance: METHYLPHENIDATE HYDROCHLORIDE
     Indication: DISTURBANCE IN ATTENTION
     Route: 048
     Dates: start: 2012
  3. METHYLPHENIDATE HYDROCHLORIDE. [Suspect]
     Active Substance: METHYLPHENIDATE HYDROCHLORIDE
     Indication: DISTURBANCE IN ATTENTION
     Route: 048
     Dates: start: 2012

REACTIONS (8)
  - Disturbance in attention [Not Recovered/Not Resolved]
  - Treatment noncompliance [Unknown]
  - Burning sensation [Unknown]
  - Feeling cold [Not Recovered/Not Resolved]
  - Anger [Not Recovered/Not Resolved]
  - Frostbite [Not Recovered/Not Resolved]
  - Drug effect decreased [Unknown]
  - Memory impairment [Not Recovered/Not Resolved]
